FAERS Safety Report 12287547 (Version 1)
Quarter: 2016Q2

REPORT INFORMATION
  Report Type: Spontaneous
  Country: IT (occurrence: IT)
  Receive Date: 20160420
  Receipt Date: 20160420
  Transmission Date: 20160815
  Serious: Yes (Hospitalization)
  Sender: FDA-Public Use
  Company Number: IT-BAYER-2016-070413

PATIENT
  Age: 53 Year
  Sex: Female
  Weight: 53 kg

DRUGS (1)
  1. BETAFERON [Suspect]
     Active Substance: INTERFERON BETA-1B
     Indication: MULTIPLE SCLEROSIS
     Dosage: 1 DF, QOD
     Route: 058
     Dates: start: 20060829, end: 20160315

REACTIONS (1)
  - Renal failure [Recovered/Resolved with Sequelae]

NARRATIVE: CASE EVENT DATE: 20160315
